FAERS Safety Report 8772865 (Version 2)
Quarter: 2012Q4

REPORT INFORMATION
  Report Type: 
  Country: TW (occurrence: TW)
  Receive Date: 20120907
  Receipt Date: 20120917
  Transmission Date: 20130627
  Serious: Yes (Hospitalization, Other)
  Sender: FDA-Public Use
  Company Number: TW-ABBOTT-12P-153-0975562-00

PATIENT
  Age: 57 Year
  Sex: Male

DRUGS (7)
  1. CLARITHROMYCIN [Suspect]
     Indication: ATYPICAL MYCOBACTERIAL INFECTION
  2. CLARITHROMYCIN [Interacting]
     Indication: BRONCHITIS
  3. SIMVASTATIN [Interacting]
     Indication: HYPERCHOLESTEROLAEMIA
  4. SIMVASTATIN [Interacting]
  5. LEVOFLOXACIN [Interacting]
     Indication: PRODUCT USED FOR UNKNOWN INDICATION
  6. CIMETIDINE [Concomitant]
     Indication: PRODUCT USED FOR UNKNOWN INDICATION
  7. MOSAPRIDE [Concomitant]
     Indication: PRODUCT USED FOR UNKNOWN INDICATION

REACTIONS (2)
  - Rhabdomyolysis [Recovered/Resolved]
  - Drug interaction [Recovered/Resolved]
